FAERS Safety Report 15510819 (Version 1)
Quarter: 2018Q4

REPORT INFORMATION
  Report Type: Spontaneous
  Country: US (occurrence: US)
  Receive Date: 20181010
  Receipt Date: 20181010
  Transmission Date: 20190205
  Serious: Yes (Hospitalization)
  Sender: FDA-Public Use
  Company Number: None

PATIENT
  Sex: Female
  Weight: 71.6 kg

DRUGS (4)
  1. PREDNISONE. [Concomitant]
     Active Substance: PREDNISONE
     Dates: end: 20180324
  2. MERCAPTOPURINE. [Suspect]
     Active Substance: MERCAPTOPURINE
     Dates: end: 20180329
  3. METHOTREXATE. [Concomitant]
     Active Substance: METHOTREXATE
     Dates: end: 20180329
  4. VINCRISTINE SULFATE. [Concomitant]
     Active Substance: VINCRISTINE SULFATE
     Dates: end: 20180319

REACTIONS (37)
  - Mental status changes [None]
  - Oral disorder [None]
  - Depressed level of consciousness [None]
  - Haemoglobin decreased [None]
  - Abdominal distension [None]
  - Appendicectomy [None]
  - Vomiting [None]
  - Culture urine positive [None]
  - Multiple organ dysfunction syndrome [None]
  - Lactic acidosis [None]
  - Colitis [None]
  - Haematochezia [None]
  - Melaena [None]
  - Coagulopathy [None]
  - Back pain [None]
  - Blood culture positive [None]
  - Hepatic failure [None]
  - Small intestinal obstruction [None]
  - Intra-abdominal fluid collection [None]
  - Diarrhoea [None]
  - Septic shock [None]
  - Cystitis haemorrhagic [None]
  - Tachycardia [None]
  - Haemoglobinuria [None]
  - Thrombosis [None]
  - Encephalopathy [None]
  - Hyperbilirubinaemia [None]
  - Gamma-glutamyltransferase increased [None]
  - Mucocutaneous haemorrhage [None]
  - Intestinal perforation [None]
  - Abdominal pain [None]
  - Arthralgia [None]
  - Hypernatraemia [None]
  - Pyrexia [None]
  - Tachypnoea [None]
  - Escherichia test positive [None]
  - Hypotension [None]
